FAERS Safety Report 9260298 (Version 4)
Quarter: 2014Q1

REPORT INFORMATION
  Report Type: Report from Study
  Country: JP (occurrence: JP)
  Receive Date: 20130429
  Receipt Date: 20140204
  Transmission Date: 20141002
  Serious: Yes (Other)
  Sender: FDA-Public Use
  Company Number: PHHY2013JP041536

PATIENT
  Age: 39 Year
  Sex: Male
  Weight: 74 kg

DRUGS (23)
  1. LEPONEX / CLOZARIL [Suspect]
     Indication: SCHIZOPHRENIA, UNDIFFERENTIATED TYPE
     Dosage: 12.5 MG, QD
     Route: 048
     Dates: start: 20110614, end: 20110614
  2. LEPONEX / CLOZARIL [Suspect]
     Dosage: 25 MG, QD
     Route: 048
     Dates: start: 20110615, end: 20110617
  3. LEPONEX / CLOZARIL [Suspect]
     Dosage: 50 MG, QD
     Route: 048
     Dates: start: 20110618, end: 20110620
  4. LEPONEX / CLOZARIL [Suspect]
     Dosage: 75 MG, QD
     Route: 048
     Dates: start: 20110621, end: 20110622
  5. LEPONEX / CLOZARIL [Suspect]
     Dosage: 100 MG, QD
     Route: 048
     Dates: start: 20110623, end: 20110624
  6. LEPONEX / CLOZARIL [Suspect]
     Dosage: 125 MG, QD
     Route: 048
     Dates: start: 20110625, end: 20110627
  7. LEPONEX / CLOZARIL [Suspect]
     Dosage: 150 MG, QD
     Route: 048
     Dates: start: 20110628, end: 20110714
  8. LEPONEX / CLOZARIL [Suspect]
     Dosage: 175 MG, QD
     Route: 048
     Dates: start: 20110715, end: 20110719
  9. LEPONEX / CLOZARIL [Suspect]
     Dosage: 200 MG, QD
     Route: 048
     Dates: start: 20110720, end: 20110726
  10. LEPONEX / CLOZARIL [Suspect]
     Dosage: 175 MG, QD
     Route: 048
     Dates: start: 20110727
  11. LEPONEX / CLOZARIL [Suspect]
     Dosage: 175 MG, QD
     Route: 048
     Dates: start: 20120615, end: 20120724
  12. LEPONEX / CLOZARIL [Suspect]
     Dosage: 200 MG, QD
     Route: 048
     Dates: start: 20120725, end: 20130417
  13. LEPONEX / CLOZARIL [Suspect]
     Dosage: 100 MG, QD
     Route: 048
     Dates: start: 20130418, end: 20130423
  14. DAIOKANZOTO [Concomitant]
     Dosage: 7500 MG, UNK
     Route: 048
     Dates: end: 20110914
  15. MAGMITT [Concomitant]
     Indication: CONSTIPATION PROPHYLAXIS
     Dosage: 990 MG
     Route: 048
     Dates: start: 20120615
  16. SENIRAN [Concomitant]
     Dosage: 15 MG
     Route: 048
     Dates: end: 20110914
  17. GASMOTIN [Concomitant]
     Dosage: 15 MG
     Route: 048
     Dates: end: 20110914
  18. FLUNITRAZEPAM [Concomitant]
     Indication: SCHIZOPHRENIA, UNDIFFERENTIATED TYPE
     Dosage: 2 MG
     Route: 048
     Dates: end: 20110706
  19. FLUNITRAZEPAM [Concomitant]
     Dosage: 1 MG
     Route: 048
  20. AKINETON                                /AUS/ [Concomitant]
     Dosage: 3 MG
     Route: 048
     Dates: start: 20110628, end: 20110914
  21. GOODMIN [Concomitant]
     Dosage: 0.25 MG
     Route: 048
     Dates: start: 20110707
  22. GOODMIN [Concomitant]
     Dosage: 0.12 MG
     Route: 048
  23. SENNOSIDE [Concomitant]
     Dosage: 12 MG
     Route: 048
     Dates: start: 20120615

REACTIONS (6)
  - Cognitive disorder [Not Recovered/Not Resolved]
  - Blood pressure diastolic decreased [Not Recovered/Not Resolved]
  - Tachycardia [Recovered/Resolved]
  - Heart rate decreased [Not Recovered/Not Resolved]
  - Blood pressure increased [Recovered/Resolved]
  - Haemoglobin decreased [Recovered/Resolved]
